FAERS Safety Report 11658798 (Version 1)
Quarter: 2015Q4

REPORT INFORMATION
  Report Type: Spontaneous
  Country: US (occurrence: US)
  Receive Date: 20151026
  Receipt Date: 20151026
  Transmission Date: 20160304
  Serious: No
  Sender: FDA-Public Use
  Company Number: US-MEDA-2013020139

PATIENT
  Sex: Female

DRUGS (1)
  1. AVC [Suspect]
     Active Substance: ALLANTOIN\AMINACRINE HYDROCHLORIDE\SULFANILAMIDE

REACTIONS (2)
  - Paraesthesia oral [Unknown]
  - Panic attack [Not Recovered/Not Resolved]
